FAERS Safety Report 18330316 (Version 8)
Quarter: 2020Q4

REPORT INFORMATION
  Report Type: Report from Study
  Country: CN (occurrence: CN)
  Receive Date: 20200930
  Receipt Date: 20201228
  Transmission Date: 20210113
  Serious: Yes (Hospitalization)
  Sender: FDA-Public Use
  Company Number: CN-ROCHE-2682262

PATIENT
  Age: 58 Year
  Sex: Male
  Weight: 54.5 kg

DRUGS (28)
  1. CIMETIDINE [Concomitant]
     Active Substance: CIMETIDINE
     Dates: start: 20200916, end: 20200916
  2. PARACETAMOL [Concomitant]
     Active Substance: ACETAMINOPHEN
     Dates: start: 20200915
  3. MEDROXYPROGESTERONE [Concomitant]
     Active Substance: MEDROXYPROGESTERONE
     Indication: DECREASED APPETITE
     Dates: start: 20200901
  4. METOCLOPRAMIDE. [Concomitant]
     Active Substance: METOCLOPRAMIDE
     Indication: NAUSEA
     Dates: start: 20200901, end: 20200907
  5. PLACEBO [Suspect]
     Active Substance: UNSPECIFIED INGREDIENT
     Indication: DIFFUSE LARGE B-CELL LYMPHOMA
     Dosage: ON 16/SEP/2020, HE RECEIVED THE MOST RECENT DOSE OF BLINDED POLATUZUMAB VEDOTIN.
     Route: 042
     Dates: start: 20200827
  6. PARACETAMOL [Concomitant]
     Active Substance: ACETAMINOPHEN
     Indication: NECK PAIN
     Dates: start: 20200825, end: 20200829
  7. ZOLPIDEM TARTRATE. [Concomitant]
     Active Substance: ZOLPIDEM TARTRATE
     Dates: start: 20200929, end: 20201005
  8. HEPARIN [Concomitant]
     Active Substance: HEPARIN SODIUM
     Dates: start: 20200826, end: 20200826
  9. AMLODIPINE BESYLATE. [Concomitant]
     Active Substance: AMLODIPINE BESYLATE
     Indication: HYPERTENSION
  10. RITUXIMAB. [Suspect]
     Active Substance: RITUXIMAB
     Indication: DIFFUSE LARGE B-CELL LYMPHOMA
     Dosage: ON 16/SEP/2020, HE RECEIVED THE MOST RECENT DOSE OF RITUXIMAB (618.75 MG)
     Route: 041
     Dates: start: 20200826
  11. COTRIMOXAZOLE [Concomitant]
     Active Substance: SULFAMETHOXAZOLE\TRIMETHOPRIM
     Dates: start: 20200825
  12. CIMETIDINE [Concomitant]
     Active Substance: CIMETIDINE
     Dates: start: 20200826, end: 20200827
  13. OLANZAPINE. [Concomitant]
     Active Substance: OLANZAPINE
     Dates: start: 20200916, end: 20200916
  14. BENDAMUSTINE [Suspect]
     Active Substance: BENDAMUSTINE
     Indication: DIFFUSE LARGE B-CELL LYMPHOMA
     Dosage: ON 17/SEP/2020, HE RECEIVED THE MOST RECENT DOSE OF BENDAMUSTINE (148.50 MG)
     Route: 042
     Dates: start: 20200827
  15. DEXAMETHASONE. [Concomitant]
     Active Substance: DEXAMETHASONE
     Dates: start: 20200916, end: 20200916
  16. CELECOXIB. [Concomitant]
     Active Substance: CELECOXIB
     Dates: start: 20200916, end: 20200916
  17. DEXAMETHASONE. [Concomitant]
     Active Substance: DEXAMETHASONE
     Dates: start: 20200826, end: 20200827
  18. PALONOSETRON. [Concomitant]
     Active Substance: PALONOSETRON HYDROCHLORIDE
     Dates: start: 20200827, end: 20200828
  19. PALONOSETRON. [Concomitant]
     Active Substance: PALONOSETRON HYDROCHLORIDE
     Dates: start: 20200916, end: 20200917
  20. LORATADINE. [Concomitant]
     Active Substance: LORATADINE
     Dates: start: 20200909, end: 20200912
  21. ZOLPIDEM [Concomitant]
     Active Substance: ZOLPIDEM TARTRATE
  22. GAMMA GLOBULIN [Concomitant]
     Active Substance: IMMUNE GLOBULIN NOS
     Dates: start: 20200828, end: 20200828
  23. GAMMA GLOBULIN [Concomitant]
     Active Substance: IMMUNE GLOBULIN NOS
     Dates: start: 20200917, end: 20200917
  24. IRBESARTAN. [Concomitant]
     Active Substance: IRBESARTAN
     Indication: HYPERTENSION
  25. CELECOXIB. [Concomitant]
     Active Substance: CELECOXIB
     Dates: start: 20200826, end: 20200827
  26. DIPHENHYDRAMINE. [Concomitant]
     Active Substance: DIPHENHYDRAMINE
     Dates: start: 20200826, end: 20200827
  27. DIPHENHYDRAMINE. [Concomitant]
     Active Substance: DIPHENHYDRAMINE
     Dates: start: 20200916, end: 20200916
  28. FEBUXOSTAT. [Concomitant]
     Active Substance: FEBUXOSTAT
     Indication: HYPERURICAEMIA
     Dates: start: 20200825

REACTIONS (1)
  - Upper gastrointestinal haemorrhage [Not Recovered/Not Resolved]

NARRATIVE: CASE EVENT DATE: 20200918
